FAERS Safety Report 17955407 (Version 2)
Quarter: 2020Q3

REPORT INFORMATION
  Report Type: Spontaneous
  Country: JP (occurrence: JP)
  Receive Date: 20200629
  Receipt Date: 20200814
  Transmission Date: 20201103
  Serious: Yes (Hospitalization, Other)
  Sender: FDA-Public Use
  Company Number: JP-GLAXOSMITHKLINE-JP2020JPN106279

PATIENT
  Age: 50 Year
  Sex: Female
  Weight: 42 kg

DRUGS (2)
  1. PREDONINE [Concomitant]
     Active Substance: PREDNISOLONE
     Dosage: ???????10MG???
  2. BENLYSTA [Suspect]
     Active Substance: BELIMUMAB
     Dosage: UNK
     Route: 041
     Dates: end: 20200603

REACTIONS (6)
  - Vasculitis [Unknown]
  - Muscular weakness [Unknown]
  - Nuchal rigidity [Unknown]
  - Monoplegia [Unknown]
  - Altered state of consciousness [Recovering/Resolving]
  - Hypoaesthesia [Unknown]
